FAERS Safety Report 9515224 (Version 1)
Quarter: 2013Q1

REPORT INFORMATION
  Report Type: Spontaneous
  Country: US (occurrence: None)
  Receive Date: 20130305
  Receipt Date: 20130305
  Transmission Date: 20140127
  Serious: Yes (Other)
  Sender: FDA-Public Use
  Company Number: 163-21880-12122731

PATIENT
  Age: 70 Year
  Sex: Female

DRUGS (9)
  1. REVLIMID [Suspect]
     Indication: PLASMA CELL MYELOMA
     Dosage: 21 IN 28 D
     Route: 048
     Dates: start: 201211
  2. HYDROXYZINE [Concomitant]
  3. DEXAMETHASONE [Concomitant]
  4. SPIRONOLACTONE [Concomitant]
  5. LISINOPRIL [Concomitant]
  6. SIMVASTATIN [Concomitant]
  7. LEVOTHYROXINE [Concomitant]
  8. HYDROCHLORIOTHIAZIDE [Concomitant]
  9. MELOXICAM [Concomitant]

REACTIONS (7)
  - Pancytopenia [None]
  - Dyspnoea [None]
  - Decreased appetite [None]
  - Asthenia [None]
  - Headache [None]
  - Cough [None]
  - Pyrexia [None]
